FAERS Safety Report 18434291 (Version 1)
Quarter: 2020Q4

REPORT INFORMATION
  Report Type: Report from Study
  Country: None (occurrence: US)
  Receive Date: 20201028
  Receipt Date: 20201028
  Transmission Date: 20210114
  Serious: Yes (Hospitalization, Other)
  Sender: FDA-Public Use
  Company Number: US-ABBVIE-19K-163-3011468-00

PATIENT
  Age: 62 Year
  Sex: Male

DRUGS (2)
  1. HUMIRA [Suspect]
     Active Substance: ADALIMUMAB
     Route: 058
     Dates: start: 2020
  2. HUMIRA [Suspect]
     Active Substance: ADALIMUMAB
     Indication: ANKYLOSING SPONDYLITIS
     Route: 058
     Dates: start: 20191016, end: 2020

REACTIONS (17)
  - Pain [Unknown]
  - Tenderness [Recovering/Resolving]
  - Injection site pruritus [Not Recovered/Not Resolved]
  - Myocardial infarction [Unknown]
  - Dysstasia [Unknown]
  - Joint range of motion decreased [Unknown]
  - Arterial occlusive disease [Unknown]
  - General physical condition abnormal [Unknown]
  - Loss of personal independence in daily activities [Unknown]
  - Joint swelling [Not Recovered/Not Resolved]
  - Mobility decreased [Unknown]
  - Discomfort [Recovering/Resolving]
  - Iritis [Recovering/Resolving]
  - Blood glucose increased [Unknown]
  - Nasopharyngitis [Not Recovered/Not Resolved]
  - Ankylosing spondylitis [Not Recovered/Not Resolved]
  - Alopecia [Unknown]

NARRATIVE: CASE EVENT DATE: 2019
